FAERS Safety Report 7808447-8 (Version None)
Quarter: 2011Q4

REPORT INFORMATION
  Report Type: 
  Country: None (occurrence: None)
  Receive Date: 20111012
  Receipt Date: 20111003
  Transmission Date: 20120403
  Serious: Yes (Other)
  Sender: FDA-Public Use
  Company Number: CA-JNJFOC-20111002510

PATIENT
  Sex: Male
  Weight: 64 kg

DRUGS (4)
  1. BENADRYL [Concomitant]
     Indication: PREMEDICATION
     Route: 048
  2. TYLENOL-500 [Concomitant]
     Indication: PREMEDICATION
     Route: 048
  3. HYDROCORTISONE [Concomitant]
     Indication: PREMEDICATION
     Route: 042
  4. REMICADE [Suspect]
     Indication: CROHN'S DISEASE
     Route: 042

REACTIONS (2)
  - ARTHRALGIA [None]
  - JOINT SWELLING [None]
